FAERS Safety Report 17382328 (Version 2)
Quarter: 2020Q1

REPORT INFORMATION
  Report Type: Spontaneous
  Country: DE (occurrence: JP)
  Receive Date: 20200206
  Receipt Date: 20200310
  Transmission Date: 20200409
  Serious: Yes (Death, Life-Threatening, Hospitalization, Other)
  Sender: FDA-Public Use
  Company Number: JP-ELI_LILLY_AND_COMPANY-JP202002001876

PATIENT
  Age: 73 Year
  Sex: Male
  Weight: 46 kg

DRUGS (9)
  1. POLARAMINE [Concomitant]
     Active Substance: DEXCHLORPHENIRAMINE MALEATE
     Indication: PROPHYLAXIS
     Dosage: 5 MG, WEEKLY (1/W)
     Route: 041
     Dates: start: 20191203, end: 20191230
  2. MINOCYCLINE [Concomitant]
     Active Substance: MINOCYCLINE HYDROCHLORIDE
     Indication: PROPHYLAXIS
     Dosage: 100 MG, DAILY
     Route: 048
     Dates: start: 20191203, end: 20191230
  3. OXYCODONE [Concomitant]
     Active Substance: OXYCODONE
     Indication: ANALGESIC THERAPY
     Dosage: 5 MG, DAILY
     Route: 048
     Dates: start: 20191227, end: 20200101
  4. NOVAMIN [PROCHLORPERAZINE MALEATE] [Concomitant]
     Indication: ADVERSE DRUG REACTION
     Dosage: 5 MG, DAILY
     Route: 048
     Dates: start: 20191228, end: 20200105
  5. ERBITUX [Suspect]
     Active Substance: CETUXIMAB
     Dosage: 250 MG/M2, WEEKLY (1/W)
     Route: 041
     Dates: start: 201912, end: 20191230
  6. DEXART [Concomitant]
     Active Substance: DEXAMETHASONE SODIUM PHOSPHATE
     Indication: PROPHYLAXIS
     Dosage: 6.6 MG, WEEKLY (1/W)
     Route: 041
     Dates: start: 20191203, end: 20191230
  7. OXINORM [OXYCODONE HYDROCHLORIDE] [Concomitant]
     Active Substance: OXYCODONE HYDROCHLORIDE
     Indication: ANALGESIC THERAPY
     Dosage: 2.5 MG, DAILY
     Route: 048
     Dates: start: 20200103, end: 20200105
  8. MAGNESIUM OXIDE. [Concomitant]
     Active Substance: MAGNESIUM OXIDE
     Indication: ADVERSE DRUG REACTION
     Dosage: 600 MG, DAILY
     Route: 048
     Dates: start: 20191227, end: 20200105
  9. ERBITUX [Suspect]
     Active Substance: CETUXIMAB
     Indication: TONGUE NEOPLASM MALIGNANT STAGE UNSPECIFIED
     Dosage: 400 MG/M2, UNK
     Route: 041
     Dates: start: 20191203, end: 20191203

REACTIONS (7)
  - Enterocolitis [Fatal]
  - Portal venous gas [Unknown]
  - Sepsis [Fatal]
  - Shock symptom [Unknown]
  - Intestinal ischaemia [Unknown]
  - Pneumatosis intestinalis [Unknown]
  - Gastrointestinal necrosis [Fatal]

NARRATIVE: CASE EVENT DATE: 202001
